FAERS Safety Report 25235887 (Version 1)
Quarter: 2025Q2

REPORT INFORMATION
  Report Type: Spontaneous
  Country: US (occurrence: US)
  Receive Date: 20250424
  Receipt Date: 20250424
  Transmission Date: 20250716
  Serious: Yes (Death, Hospitalization, Other)
  Sender: AMGEN
  Company Number: US-AMGEN-USASP2025078207

PATIENT
  Age: 78 Year
  Sex: Female

DRUGS (2)
  1. PREDNISONE [Suspect]
     Active Substance: PREDNISONE
     Indication: Pemphigoid
     Route: 065
  2. METHOTREXATE [Concomitant]
     Active Substance: METHOTREXATE
     Indication: Pemphigoid
     Route: 065

REACTIONS (6)
  - Death [Fatal]
  - Acute respiratory failure [Unknown]
  - Aortic arteriosclerosis [Unknown]
  - Mesenteric arterial occlusion [Unknown]
  - Aortic aneurysm [Unknown]
  - Coagulopathy [Unknown]
